FAERS Safety Report 18185995 (Version 1)
Quarter: 2020Q3

REPORT INFORMATION
  Report Type: Spontaneous
  Country: GB (occurrence: GB)
  Receive Date: 20200824
  Receipt Date: 20200824
  Transmission Date: 20201103
  Serious: Yes (Hospitalization, Disabling)
  Sender: FDA-Public Use
  Company Number: GB-TEVA-2020-GB-1817011

PATIENT
  Age: 48 Year
  Sex: Female
  Weight: 125.18 kg

DRUGS (21)
  1. VENTOLIN [Concomitant]
     Active Substance: ALBUTEROL SULFATE
  2. EVACAL D3 CHEWABLE [Concomitant]
  3. SUMATRIPTAN. [Concomitant]
     Active Substance: SUMATRIPTAN
  4. PREDNISOLONE. [Concomitant]
     Active Substance: PREDNISOLONE
  5. AMLODIPINE [Suspect]
     Active Substance: AMLODIPINE BESYLATE
     Indication: SECONDARY HYPERTENSION
     Route: 048
     Dates: start: 20200724, end: 20200727
  6. QVAR [Concomitant]
     Active Substance: BECLOMETHASONE DIPROPIONATE
  7. GAVISCON ADVANCE [Concomitant]
     Active Substance: POTASSIUM BICARBONATE\SODIUM ALGINATE
  8. DOCUSATE SODIUM. [Concomitant]
     Active Substance: DOCUSATE SODIUM
  9. SODIUM HYALURONATE [Concomitant]
     Active Substance: HYALURONATE SODIUM
  10. LORATADINE. [Concomitant]
     Active Substance: LORATADINE
  11. RELVAR ELLIPTA [Concomitant]
     Active Substance: FLUTICASONE FUROATE\VILANTEROL TRIFENATATE
  12. HYDROCORTISONE SODIUM PHOSPHATE [Concomitant]
     Active Substance: HYDROCORTISONE SODIUM PHOSPHATE
     Indication: ADRENOCORTICAL INSUFFICIENCY ACUTE
  13. METFORMIN [Concomitant]
     Active Substance: METFORMIN HYDROCHLORIDE
  14. SPIRIVA [Concomitant]
     Active Substance: TIOTROPIUM BROMIDE MONOHYDRATE
  15. NAPROXEN. [Concomitant]
     Active Substance: NAPROXEN
  16. SANDOZ LTD GABAPENTIN [Concomitant]
     Active Substance: GABAPENTIN
  17. COCODAMOL [Concomitant]
     Active Substance: ACETAMINOPHEN\CODEINE PHOSPHATE
  18. ACTAVIS GROUP PTC LANSOPRAZOLE [Concomitant]
  19. MONTELUKAST [Concomitant]
     Active Substance: MONTELUKAST SODIUM
  20. PFIZER LATANOPROST [Concomitant]
  21. CARBOCISTEINE [Concomitant]
     Active Substance: CARBOCYSTEINE

REACTIONS (4)
  - Migraine [Recovered/Resolved]
  - Photophobia [Unknown]
  - Nausea [Unknown]
  - Vomiting [Unknown]

NARRATIVE: CASE EVENT DATE: 20200725
